APPROVED DRUG PRODUCT: NARCAN
Active Ingredient: NALOXONE HYDROCHLORIDE
Strength: 1MG/ML
Dosage Form/Route: INJECTABLE;INJECTION
Application: A071311 | Product #001
Applicant: BRISTOL MYERS SQUIBB PHARMA CO
Approved: Jul 28, 1988 | RLD: No | RS: No | Type: DISCN